FAERS Safety Report 8186672-7 (Version None)
Quarter: 2012Q1

REPORT INFORMATION
  Report Type: 
  Country: None (occurrence: None)
  Receive Date: 20120213
  Receipt Date: 20110110
  Transmission Date: 20120608
  Serious: Yes (Hospitalization)
  Sender: FDA-Public Use
  Company Number: E2020-08318-SPO-US

PATIENT
  Age: 85 Year
  Sex: Male
  Weight: 77.27 kg

DRUGS (6)
  1. ARICEPT [Suspect]
     Indication: DEMENTIA ALZHEIMER'S TYPE
     Dosage: 10 MG, 1 IN 1 D, ORAL
     Route: 048
     Dates: start: 20091019, end: 20101129
  2. POTASSIUM CHLORIDE [Concomitant]
  3. LASIX [Concomitant]
  4. ZYPREXA [Concomitant]
  5. LISINOPRIL [Concomitant]
  6. NAMENDA [Concomitant]

REACTIONS (1)
  - CONVULSION [None]
